FAERS Safety Report 14422219 (Version 2)
Quarter: 2018Q1

REPORT INFORMATION
  Report Type: Spontaneous
  Country: US (occurrence: US)
  Receive Date: 20180123
  Receipt Date: 20180130
  Transmission Date: 20180509
  Serious: Yes (Hospitalization)
  Sender: FDA-Public Use
  Company Number: US-DRREDDYS-USA/USA/18/0095752

PATIENT
  Age: 77 Year
  Sex: Female

DRUGS (1)
  1. NICOTINE. [Suspect]
     Active Substance: NICOTINE
     Indication: SMOKING CESSATION THERAPY
     Route: 062

REACTIONS (4)
  - Drug ineffective [Unknown]
  - Hospitalisation [Unknown]
  - Nicotine dependence [Unknown]
  - Treatment noncompliance [Unknown]
